FAERS Safety Report 18668207 (Version 7)
Quarter: 2022Q3

REPORT INFORMATION
  Report Type: Report from Study
  Country: KR (occurrence: KR)
  Receive Date: 20201228
  Receipt Date: 20220820
  Transmission Date: 20221027
  Serious: Yes (Other)
  Sender: FDA-Public Use
  Company Number: KR-ABBVIE-20K-090-3705673-00

PATIENT
  Age: 50 Year
  Sex: Female
  Weight: 76 kg

DRUGS (14)
  1. SKYRIZI [Suspect]
     Active Substance: RISANKIZUMAB-RZAA
     Indication: Psoriasis
     Route: 058
     Dates: start: 20200831, end: 20200831
  2. SKYRIZI [Suspect]
     Active Substance: RISANKIZUMAB-RZAA
     Route: 058
     Dates: start: 20200928, end: 20200928
  3. SKYRIZI [Suspect]
     Active Substance: RISANKIZUMAB-RZAA
     Route: 058
     Dates: start: 20201026, end: 20201026
  4. SKYRIZI [Suspect]
     Active Substance: RISANKIZUMAB-RZAA
     Route: 058
     Dates: start: 20201221, end: 20201221
  5. SKYRIZI [Suspect]
     Active Substance: RISANKIZUMAB-RZAA
     Route: 058
     Dates: start: 20210318, end: 20210318
  6. SKYRIZI [Suspect]
     Active Substance: RISANKIZUMAB-RZAA
     Route: 058
     Dates: start: 20210617, end: 20210617
  7. SKYRIZI [Suspect]
     Active Substance: RISANKIZUMAB-RZAA
     Route: 058
     Dates: start: 20210915, end: 20210915
  8. ISONIAZID [Concomitant]
     Active Substance: ISONIAZID
     Indication: Latent tuberculosis
     Route: 048
     Dates: start: 20200810, end: 20201025
  9. ISONIAZID [Concomitant]
     Active Substance: ISONIAZID
     Route: 048
     Dates: start: 20201126, end: 20210617
  10. PYRIDOXINE SINIL [Concomitant]
     Indication: Latent tuberculosis
     Route: 048
     Dates: start: 20200810, end: 20201025
  11. PYRIDOXINE SINIL [Concomitant]
     Indication: Prophylaxis
     Route: 048
     Dates: start: 20201126, end: 20210617
  12. ESPERSON [Concomitant]
     Indication: Psoriasis
     Dosage: LOTION?PRN?UNIT DOSE : UK, UNIT : ML
     Route: 061
     Dates: start: 20180626
  13. OMEGA 3 [Concomitant]
     Active Substance: CAPSAICIN
     Indication: Nutritional supplementation
     Route: 048
     Dates: start: 200001
  14. DAIVOBET [Concomitant]
     Active Substance: BETAMETHASONE DIPROPIONATE\CALCIPOTRIENE
     Indication: Psoriasis
     Dosage: PRN?UNIT DOSE : UK, UNIT : G
     Route: 061
     Dates: start: 20210617

REACTIONS (3)
  - Hepatotoxicity [Recovered/Resolved]
  - Rosacea [Recovering/Resolving]
  - Peripheral swelling [Recovering/Resolving]

NARRATIVE: CASE EVENT DATE: 20200928
